FAERS Safety Report 10893321 (Version 3)
Quarter: 2015Q4

REPORT INFORMATION
  Report Type: Report from Study
  Country: US (occurrence: US)
  Receive Date: 20150306
  Receipt Date: 20151119
  Transmission Date: 20160304
  Serious: Yes (Hospitalization)
  Sender: FDA-Public Use
  Company Number: US-ACTELION-A-US2015-113951

PATIENT
  Age: 67 Year
  Sex: Female

DRUGS (3)
  1. TRACLEER [Suspect]
     Active Substance: BOSENTAN
     Indication: PULMONARY ARTERIAL HYPERTENSION
     Dosage: UNK
     Route: 048
  2. TYVASO [Concomitant]
     Active Substance: TREPROSTINIL
  3. SILDENAFIL. [Concomitant]
     Active Substance: SILDENAFIL

REACTIONS (8)
  - Fall [Unknown]
  - Pneumonia [Unknown]
  - Traumatic lung injury [Unknown]
  - Bronchitis [Unknown]
  - Tachycardia [Unknown]
  - Pulmonary arterial hypertension [Unknown]
  - Chronic obstructive pulmonary disease [Unknown]
  - Lung infection [Unknown]
